FAERS Safety Report 17964389 (Version 1)
Quarter: 2020Q2

REPORT INFORMATION
  Report Type: Spontaneous
  Country: DK (occurrence: DK)
  Receive Date: 20200630
  Receipt Date: 20200630
  Transmission Date: 20200714
  Serious: Yes (Death, Hospitalization)
  Sender: FDA-Public Use
  Company Number: DK-BAXTER-2020BAX012086

PATIENT
  Age: 56 Year
  Sex: Female

DRUGS (24)
  1. CARBOPLATIN. [Suspect]
     Active Substance: CARBOPLATIN
     Indication: B-CELL LYMPHOMA
     Dosage: SERIES 1
     Route: 042
     Dates: start: 20140922, end: 20140924
  2. ETOPOSIDE EBEWE [Suspect]
     Active Substance: ETOPOSIDE
     Route: 042
     Dates: end: 201411
  3. MABTHERA [Suspect]
     Active Substance: RITUXIMAB
     Indication: B-CELL LYMPHOMA
     Dosage: SERIES 1
     Route: 042
     Dates: start: 20140922, end: 20140924
  4. KALEORID [Concomitant]
     Active Substance: POTASSIUM CHLORIDE
     Indication: MINERAL SUPPLEMENTATION
     Route: 065
  5. HOLOXAN [Suspect]
     Active Substance: IFOSFAMIDE
     Route: 042
     Dates: end: 201411
  6. ALLOPURINOL. [Concomitant]
     Active Substance: ALLOPURINOL
     Indication: GOUT
     Route: 065
  7. DEXAMETASONE [Concomitant]
     Active Substance: DEXAMETHASONE
     Indication: NEOPLASM MALIGNANT
     Route: 065
  8. PANTOPRAZOL ACTAVIS [Concomitant]
     Active Substance: PANTOPRAZOLE SODIUM
     Indication: GASTROOESOPHAGEAL REFLUX PROPHYLAXIS
     Route: 065
  9. SULFAMETOXAZOL MED TRIMETOPRIM [Concomitant]
     Active Substance: SULFAMETHOXAZOLE\TRIMETHOPRIM
     Indication: INFECTION PROPHYLAXIS
     Route: 065
  10. ETOPOSIDE EBEWE [Suspect]
     Active Substance: ETOPOSIDE
     Indication: B-CELL LYMPHOMA
     Dosage: SERIES 1
     Route: 042
     Dates: start: 20140922, end: 20140924
  11. MABTHERA [Suspect]
     Active Substance: RITUXIMAB
     Dosage: SERIES 2
     Route: 042
     Dates: start: 20141013, end: 20141015
  12. MABTHERA [Suspect]
     Active Substance: RITUXIMAB
     Route: 042
     Dates: end: 201411
  13. MABTHERA [Suspect]
     Active Substance: RITUXIMAB
     Dosage: DOSE RE-INTRODUCED
     Route: 065
  14. CARBOPLATIN. [Suspect]
     Active Substance: CARBOPLATIN
     Dosage: SERIES 2
     Route: 042
     Dates: start: 20141013, end: 20141015
  15. CARBOPLATIN. [Suspect]
     Active Substance: CARBOPLATIN
     Route: 042
     Dates: end: 201411
  16. GASTRO-TIMELETS [Concomitant]
     Indication: NAUSEA
     Route: 065
  17. UROMITEXAN [Suspect]
     Active Substance: MESNA
     Indication: PRODUCT USED FOR UNKNOWN INDICATION
     Route: 065
     Dates: start: 20140922
  18. HOLOXAN [Suspect]
     Active Substance: IFOSFAMIDE
     Dosage: DOSE RE-INTRODUCED
     Route: 042
  19. ETOPOSIDE EBEWE [Suspect]
     Active Substance: ETOPOSIDE
     Dosage: DOSE RE-INTRODUCED
     Route: 042
  20. HOLOXAN [Suspect]
     Active Substance: IFOSFAMIDE
     Indication: B-CELL LYMPHOMA
     Dosage: SERIES 1
     Route: 042
     Dates: start: 20140922, end: 20140924
  21. HOLOXAN [Suspect]
     Active Substance: IFOSFAMIDE
     Dosage: SERIES 2
     Route: 042
     Dates: start: 20141013, end: 20141015
  22. CARBOPLATIN. [Suspect]
     Active Substance: CARBOPLATIN
     Dosage: DOSE RE-INTRODUCED
     Route: 042
  23. ETOPOSIDE EBEWE [Suspect]
     Active Substance: ETOPOSIDE
     Dosage: SERIES 2
     Route: 042
     Dates: start: 20141013, end: 20141015
  24. ZOVIR [Concomitant]
     Active Substance: ACYCLOVIR
     Indication: HERPES VIRUS INFECTION
     Route: 065

REACTIONS (3)
  - Death [Fatal]
  - Hypertension [Unknown]
  - Posterior reversible encephalopathy syndrome [Recovering/Resolving]

NARRATIVE: CASE EVENT DATE: 20141111
